FAERS Safety Report 5191186-2 (Version None)
Quarter: 2006Q4

REPORT INFORMATION
  Report Type: 
  Country: None (occurrence: None)
  Receive Date: 20061218
  Receipt Date: 20061207
  Transmission Date: 20070319
  Serious: Yes (Other)
  Sender: FDA-Public Use
  Company Number: 2006143297

PATIENT
  Age: 64 Year
  Sex: Female

DRUGS (1)
  1. NIFEDIPINE [Suspect]
     Dosage: 25 MG

REACTIONS (8)
  - FEELING COLD [None]
  - HYPERAESTHESIA [None]
  - HYPOAESTHESIA [None]
  - LOSS OF CONSCIOUSNESS [None]
  - PALPITATIONS [None]
  - PERIPHERAL COLDNESS [None]
  - POOR QUALITY SLEEP [None]
  - URINE OUTPUT INCREASED [None]
